FAERS Safety Report 9217307 (Version 3)
Quarter: 2013Q3

REPORT INFORMATION
  Report Type: Spontaneous
  Country: US (occurrence: US)
  Receive Date: 20130408
  Receipt Date: 20130717
  Transmission Date: 20140515
  Serious: No
  Sender: FDA-Public Use
  Company Number: US-PFIZER INC-2013106689

PATIENT
  Age: 53 Year
  Sex: Female

DRUGS (2)
  1. PREMARIN [Suspect]
     Dosage: 1 GRAM, ONCE OR TWICE A WEEK
     Route: 067
  2. PREMPRO [Suspect]
     Dosage: 1 PO, 1X/DAY  (QD)
     Route: 048

REACTIONS (1)
  - Malaise [Unknown]
